FAERS Safety Report 6893741-8 (Version None)
Quarter: 2010Q3

REPORT INFORMATION
  Report Type: 
  Country: None (occurrence: None)
  Receive Date: 20100802
  Receipt Date: 20100722
  Transmission Date: 20110219
  Serious: Yes (Hospitalization)
  Sender: FDA-Public Use
  Company Number: US-BIOGENIDEC-2010BI012661

PATIENT
  Age: 43 Year
  Sex: Female

DRUGS (12)
  1. TYSABRI [Suspect]
     Indication: MULTIPLE SCLEROSIS
     Route: 042
     Dates: start: 20080520, end: 20100309
  2. TYSABRI [Suspect]
     Route: 042
     Dates: start: 20100610
  3. NEURONTIN [Concomitant]
  4. AMBIEN [Concomitant]
  5. MECLIZINE [Concomitant]
  6. ZONEGRAN [Concomitant]
  7. PHENERGAN [Concomitant]
  8. POTASSIUM [Concomitant]
  9. ARICEPT [Concomitant]
  10. ZANAFLEX [Concomitant]
  11. HYDROCHLOROTHIAZIDE [Concomitant]
  12. ZOCOR [Concomitant]

REACTIONS (17)
  - ABDOMINAL PAIN UPPER [None]
  - BLADDER DISORDER [None]
  - CONSTIPATION [None]
  - FAECAL INCONTINENCE [None]
  - GALLBLADDER DISORDER [None]
  - GASTRITIS [None]
  - HAEMATEMESIS [None]
  - HEADACHE [None]
  - HYPERHIDROSIS [None]
  - HYPOAESTHESIA [None]
  - NAUSEA [None]
  - OESOPHAGITIS ULCERATIVE [None]
  - PAIN [None]
  - PALPITATIONS [None]
  - PARAESTHESIA [None]
  - TREMOR [None]
  - WEIGHT DECREASED [None]
